FAERS Safety Report 21801491 (Version 3)
Quarter: 2023Q1

REPORT INFORMATION
  Report Type: Spontaneous
  Country: US (occurrence: US)
  Receive Date: 20221230
  Receipt Date: 20230120
  Transmission Date: 20230417
  Serious: No
  Sender: FDA-Public Use
  Company Number: US-PFIZER INC-202201401253

PATIENT
  Age: 74 Year
  Sex: Female
  Weight: 62.14 kg

DRUGS (2)
  1. PAXLOVID [Suspect]
     Active Substance: NIRMATRELVIR\RITONAVIR
     Indication: COVID-19 treatment
     Dosage: [PF-07321332 300 MG]/[RITONAVIR 100 MG]; 2X/DAY (ONCE IN MORNING AND ONCE IN EVENING)
     Dates: start: 20221224, end: 20221228
  2. LOSARTAN [Concomitant]
     Active Substance: LOSARTAN
     Dosage: 50 MG
     Dates: start: 2021

REACTIONS (1)
  - Alopecia [Not Recovered/Not Resolved]

NARRATIVE: CASE EVENT DATE: 20221226
